FAERS Safety Report 11707559 (Version 1)
Quarter: 2015Q4

REPORT INFORMATION
  Report Type: Spontaneous
  Country: BG (occurrence: BG)
  Receive Date: 20151106
  Receipt Date: 20151106
  Transmission Date: 20160304
  Serious: Yes (Death)
  Sender: FDA-Public Use
  Company Number: BG-ASTRAZENECA-2015SE88933

PATIENT
  Age: 29595 Day
  Sex: Female
  Weight: 90 kg

DRUGS (8)
  1. BRILIQUE [Suspect]
     Active Substance: TICAGRELOR
     Indication: ANGINA PECTORIS
     Dosage: 2 DF LOADING DOSE
     Route: 048
     Dates: start: 20150901, end: 20150901
  2. ACETYLSALICYLIC ACID [Concomitant]
     Active Substance: ASPIRIN
     Indication: ACUTE CORONARY SYNDROME
     Dates: end: 20150901
  3. BRILIQUE [Suspect]
     Active Substance: TICAGRELOR
     Indication: ACUTE MYOCARDIAL INFARCTION
     Dosage: 2 DF LOADING DOSE
     Route: 048
     Dates: start: 20150901, end: 20150901
  4. BRILIQUE [Suspect]
     Active Substance: TICAGRELOR
     Indication: ANGINA PECTORIS
     Route: 048
     Dates: start: 20150602, end: 20150602
  5. PLAVIX [Concomitant]
     Active Substance: CLOPIDOGREL BISULFATE
     Indication: ACUTE CORONARY SYNDROME
     Dates: start: 20150615, end: 20150831
  6. HEPARIN [Concomitant]
     Active Substance: HEPARIN SODIUM
     Dosage: 100 E PER KG
     Dates: start: 20150602
  7. BETALOC ZOC [Concomitant]
     Dates: end: 20150901
  8. BRILIQUE [Suspect]
     Active Substance: TICAGRELOR
     Indication: ACUTE MYOCARDIAL INFARCTION
     Route: 048
     Dates: start: 20150602, end: 20150602

REACTIONS (1)
  - Haemorrhage intracranial [Fatal]

NARRATIVE: CASE EVENT DATE: 20150901
